FAERS Safety Report 4801573-7 (Version None)
Quarter: 2005Q4

REPORT INFORMATION
  Report Type: 
  Country: None (occurrence: None)
  Receive Date: 20051012
  Receipt Date: 20050928
  Transmission Date: 20060501
  Serious: Yes (Other)
  Sender: FDA-Public Use
  Company Number: 200507590

PATIENT
  Age: 37 Year
  Sex: Female
  Weight: 39.5 kg

DRUGS (1)
  1. BOTOX [Suspect]
     Indication: MUSCLE SPASMS
     Dosage: 75 UNITS ONCE
     Dates: start: 20050630

REACTIONS (6)
  - DYSPHAGIA [None]
  - HEADACHE [None]
  - HYPOKINESIA [None]
  - MUSCULAR WEAKNESS [None]
  - PARALYSIS [None]
  - POST PROCEDURAL COMPLICATION [None]
